FAERS Safety Report 21641890 (Version 2)
Quarter: 2022Q4

REPORT INFORMATION
  Report Type: Report from Study
  Country: US (occurrence: US)
  Receive Date: 20221125
  Receipt Date: 20221219
  Transmission Date: 20230113
  Serious: No
  Sender: FDA-Public Use
  Company Number: US-ABBVIE-4212582

PATIENT
  Sex: Male

DRUGS (1)
  1. IMBRUVICA [Suspect]
     Active Substance: IBRUTINIB
     Indication: Non-Hodgkin^s lymphoma
     Dosage: END DATE 2022
     Route: 048
     Dates: start: 202207

REACTIONS (3)
  - Peripheral swelling [Unknown]
  - Tinea cruris [Unknown]
  - Nasopharyngitis [Unknown]
